FAERS Safety Report 19470528 (Version 2)
Quarter: 2021Q3

REPORT INFORMATION
  Report Type: Spontaneous
  Country: US (occurrence: US)
  Receive Date: 20210628
  Receipt Date: 20210830
  Transmission Date: 20211014
  Serious: Yes (Other)
  Sender: FDA-Public Use
  Company Number: NVSC2021US139899

PATIENT
  Sex: Male

DRUGS (2)
  1. ENOXAPARIN [Suspect]
     Active Substance: ENOXAPARIN
     Indication: FOETAL EXPOSURE DURING PREGNANCY
     Dosage: MATERNAL DOSE:UNK
     Route: 064
  2. METOPROLOL. [Suspect]
     Active Substance: METOPROLOL
     Indication: FOETAL EXPOSURE DURING PREGNANCY
     Dosage: MATERNAL DOSE:UNK
     Route: 064

REACTIONS (3)
  - Foetal exposure during pregnancy [Unknown]
  - Foetal distress syndrome [Unknown]
  - Premature baby [Unknown]
